FAERS Safety Report 24439371 (Version 1)
Quarter: 2024Q4

REPORT INFORMATION
  Report Type: Spontaneous
  Country: CN (occurrence: CN)
  Receive Date: 20241015
  Receipt Date: 20241015
  Transmission Date: 20250114
  Serious: Yes (Hospitalization, Other)
  Sender: MERCK
  Company Number: CN-009507513-2410CHN004904

PATIENT
  Age: 61 Year
  Sex: Female

DRUGS (5)
  1. MOLNUPIRAVIR [Suspect]
     Active Substance: MOLNUPIRAVIR
     Indication: COVID-19
     Dosage: UNK
     Route: 048
     Dates: start: 2023
  2. RO-0622 [Suspect]
     Active Substance: RO-0622
     Indication: Antiviral treatment
     Dosage: UNK
     Dates: start: 2023
  3. DEXAMETHASONE [Suspect]
     Active Substance: DEXAMETHASONE
     Indication: Inflammation
     Dosage: UNK
     Dates: start: 2023
  4. ISAVUCONAZOLE [Suspect]
     Active Substance: ISAVUCONAZOLE
     Indication: Anti-infective therapy
     Dosage: UNK
     Dates: start: 2023
  5. VORICONAZOLE [Suspect]
     Active Substance: VORICONAZOLE
     Indication: Anti-infective therapy
     Dosage: UNK
     Dates: start: 2023

REACTIONS (2)
  - Drug-induced liver injury [Unknown]
  - Product use in unapproved indication [Unknown]

NARRATIVE: CASE EVENT DATE: 20230101
